FAERS Safety Report 5051443-7 (Version None)
Quarter: 2006Q3

REPORT INFORMATION
  Report Type: 
  Country: None (occurrence: None)
  Receive Date: 20060710
  Receipt Date: 20060628
  Transmission Date: 20061208
  Serious: Yes (Life-Threatening, Other)
  Sender: FDA-Public Use
  Company Number: 225546

PATIENT
  Age: 61 Year
  Sex: Male
  Weight: 103.4 kg

DRUGS (1)
  1. RAPTIVA [Suspect]
     Indication: PSORIASIS
     Dosage: 125 MG 1/WEEK INTRAVENOUS
     Route: 042

REACTIONS (1)
  - PULMONARY FIBROSIS [None]
